FAERS Safety Report 6835277-6 (Version None)
Quarter: 2010Q3

REPORT INFORMATION
  Report Type: 
  Country: None (occurrence: None)
  Receive Date: 20100713
  Receipt Date: 20100629
  Transmission Date: 20110219
  Serious: Yes (Other)
  Sender: FDA-Public Use
  Company Number: US-BAYER-201026504NA

PATIENT
  Age: 40 Year
  Sex: Male
  Weight: 92 kg

DRUGS (4)
  1. CAMPATH [Suspect]
     Indication: MULTIPLE SCLEROSIS
     Dosage: TOTAL DAILY DOSE: 12 MG
     Route: 042
     Dates: start: 20090601, end: 20090605
  2. CAMPATH [Suspect]
     Dosage: TOTAL DAILY DOSE: 12 MG
     Route: 042
     Dates: start: 20100614, end: 20100616
  3. METHYLPREDNISOLONE [Concomitant]
     Dates: start: 20090601, end: 20090603
  4. METHYLPREDNISOLONE [Concomitant]
     Dates: start: 20100614

REACTIONS (1)
  - ATRIOVENTRICULAR BLOCK [None]
